FAERS Safety Report 13722001 (Version 2)
Quarter: 2018Q1

REPORT INFORMATION
  Report Type: Spontaneous
  Country: US (occurrence: US)
  Receive Date: 20170706
  Receipt Date: 20180110
  Transmission Date: 20180508
  Serious: No
  Sender: FDA-Public Use
  Company Number: US-PFIZER INC-2017282979

PATIENT
  Age: 47 Year
  Sex: Female
  Weight: 83.9 kg

DRUGS (4)
  1. LYRICA [Suspect]
     Active Substance: PREGABALIN
     Dosage: 700 MG, DAILY (300MG TWICE A DAY AND 100MG ONCE A DAY)
     Dates: start: 201701, end: 201706
  2. LYRICA [Suspect]
     Active Substance: PREGABALIN
     Dosage: 500 MG, DAILY (200 MG TWICE A DAY AND 100 MG ONCE A DAY)
     Route: 048
     Dates: start: 2017
  3. LYRICA [Suspect]
     Active Substance: PREGABALIN
     Indication: NEUROPATHY PERIPHERAL
     Dosage: 475 MG, DAILY (200 MG TWICE A DAY AND 75 MG ONCE A DAY)
     Route: 048
     Dates: start: 2014
  4. TRAMADOL. [Concomitant]
     Active Substance: TRAMADOL
     Indication: NEUROPATHY PERIPHERAL
     Dosage: 50 MG, 2X/DAY
     Route: 048

REACTIONS (3)
  - Prescribed overdose [Unknown]
  - Therapeutic response unexpected [Unknown]
  - Pre-existing condition improved [Unknown]
